FAERS Safety Report 6923679-9 (Version None)
Quarter: 2010Q3

REPORT INFORMATION
  Report Type: 
  Country: None (occurrence: None)
  Receive Date: 20100813
  Receipt Date: 20100805
  Transmission Date: 20110219
  Serious: Yes (Death, Hospitalization)
  Sender: FDA-Public Use
  Company Number: B0668631A

PATIENT
  Sex: Male

DRUGS (12)
  1. ARIXTRA [Suspect]
     Indication: ATRIAL FIBRILLATION
     Dosage: 1INJ PER DAY
     Route: 058
     Dates: start: 20100305, end: 20100320
  2. PLAVIX [Suspect]
     Indication: PRODUCT USED FOR UNKNOWN INDICATION
     Dosage: 1UNIT PER DAY
     Route: 048
  3. MORPHINE [Concomitant]
     Route: 065
  4. RIFADIN [Concomitant]
     Route: 065
  5. SERESTA [Concomitant]
     Route: 065
  6. LOXAPAC [Concomitant]
     Route: 065
  7. SPASFON [Concomitant]
     Route: 065
  8. OFLOCET [Concomitant]
     Route: 065
  9. CORDARONE [Concomitant]
     Route: 065
  10. LASIX [Concomitant]
     Route: 065
  11. PROSCAR [Concomitant]
     Route: 065
  12. ACUPAN [Concomitant]
     Route: 065

REACTIONS (9)
  - GINGIVAL BLEEDING [None]
  - HAEMATOMA [None]
  - HAEMATURIA [None]
  - HYPOTENSION [None]
  - MALAISE [None]
  - OFF LABEL USE [None]
  - OXYGEN SATURATION DECREASED [None]
  - PUNCTURE SITE HAEMORRHAGE [None]
  - SHOCK HAEMORRHAGIC [None]
